FAERS Safety Report 4869543-0 (Version None)
Quarter: 2005Q4

REPORT INFORMATION
  Report Type: 
  Country: None (occurrence: None)
  Receive Date: 20051227
  Receipt Date: 20051212
  Transmission Date: 20060501
  Serious: Yes (Other)
  Sender: FDA-Public Use
  Company Number: CH-JNJFOC-20051203207

PATIENT
  Age: 70 Year
  Sex: Female

DRUGS (11)
  1. REMINYL (GALANTAMINE HBR) PROLONGED-RELEASE CAPSULE [Suspect]
     Indication: DEMENTIA ALZHEIMER'S TYPE
     Dosage: SEE IMAGE
     Route: 048
     Dates: start: 20051003, end: 20051031
  2. REMINYL (GALANTAMINE HBR) PROLONGED-RELEASE CAPSULE [Suspect]
     Indication: DEMENTIA ALZHEIMER'S TYPE
     Dosage: SEE IMAGE
     Route: 048
     Dates: start: 20051101, end: 20051101
  3. REMINYL (GALANTAMINE HBR) PROLONGED-RELEASE CAPSULE [Suspect]
     Indication: DEMENTIA ALZHEIMER'S TYPE
     Dosage: SEE IMAGE
     Route: 048
     Dates: start: 20051031, end: 20051114
  4. METFIN (METFORMIN) [Concomitant]
  5. LESCOL [Concomitant]
  6. ISOPTIN [Concomitant]
  7. CIPRALEX (CITALOPRAM) [Concomitant]
  8. ASPIRIN [Concomitant]
  9. ACTONEL [Concomitant]
  10. NOVOMIX (INSULIN ASPART) [Concomitant]
  11. LEVEMIR (INSULIN) [Concomitant]

REACTIONS (1)
  - FAECAL INCONTINENCE [None]
